FAERS Safety Report 14026752 (Version 1)
Quarter: 2017Q3

REPORT INFORMATION
  Report Type: Spontaneous
  Country: BR (occurrence: BR)
  Receive Date: 20170929
  Receipt Date: 20170929
  Transmission Date: 20171128
  Serious: Yes (Other)
  Sender: FDA-Public Use
  Company Number: BR-NOVEN PHARMACEUTICALS, INC.-BR2017000747

PATIENT

DRUGS (1)
  1. ESTRADIOL/NORETHISTERONE ACETATE [Suspect]
     Active Substance: ESTRADIOL\NORETHINDRONE ACETATE
     Indication: HORMONE REPLACEMENT THERAPY
     Dosage: 1 DF (1 PATCH A DAY 2 TIMES A WEEK), UNK
     Route: 062

REACTIONS (3)
  - Blood pressure increased [Recovering/Resolving]
  - Breast mass [Not Recovered/Not Resolved]
  - Feeling hot [Recovering/Resolving]
